FAERS Safety Report 6470816-9 (Version None)
Quarter: 2009Q4

REPORT INFORMATION
  Report Type: 
  Country: None (occurrence: None)
  Receive Date: 20091203
  Receipt Date: 20091124
  Transmission Date: 20100525
  Serious: Yes (Hospitalization, Other)
  Sender: FDA-Public Use
  Company Number: BR-ABBOTT-09P-020-0602927-00

PATIENT
  Sex: Female

DRUGS (8)
  1. HUMIRA [Suspect]
     Indication: MUSCULOSKELETAL PAIN
     Route: 058
     Dates: start: 20090623, end: 20090807
  2. HUMIRA [Suspect]
     Indication: SYSTEMIC LUPUS ERYTHEMATOSUS
  3. PREDNISONE [Concomitant]
     Indication: MUSCULOSKELETAL PAIN
     Route: 048
     Dates: start: 19920101
  4. OMEPRAZOLE [Concomitant]
     Indication: GASTRIC DISORDER
     Route: 048
     Dates: start: 19920101
  5. LOSARTAN [Concomitant]
     Indication: HYPERTENSION
     Route: 048
     Dates: start: 20060101
  6. AMLODIPINE [Concomitant]
     Indication: HEADACHE
     Route: 048
     Dates: start: 20060101
  7. VITAMIN B SUBSTANCES WIITH CALCIUM [Concomitant]
     Indication: VITAMIN SUPPLEMENTATION
     Dosage: 2 PER DAY
     Route: 048
     Dates: start: 20090901
  8. ALENDRONATE SODIUM [Concomitant]
     Indication: BONE DISORDER
     Route: 048
     Dates: start: 19920101

REACTIONS (4)
  - ARTHRALGIA [None]
  - BONE EROSION [None]
  - OSTEOARTHRITIS [None]
  - PAIN [None]
